FAERS Safety Report 11560793 (Version 2)
Quarter: 2015Q4

REPORT INFORMATION
  Report Type: Report from Study
  Country: CN (occurrence: CN)
  Receive Date: 20150928
  Receipt Date: 20151001
  Transmission Date: 20160304
  Serious: Yes (Other)
  Sender: FDA-Public Use
  Company Number: CN-ASTELLAS-2015US035065

PATIENT
  Age: 27 Year
  Sex: Female

DRUGS (1)
  1. MICAFUNGIN [Suspect]
     Active Substance: MICAFUNGIN
     Indication: FUNGAL INFECTION
     Route: 042
     Dates: start: 20131009, end: 20131021

REACTIONS (4)
  - Hypokalaemia [Recovering/Resolving]
  - Renal failure [Recovering/Resolving]
  - Hyperuricaemia [Recovering/Resolving]
  - Hypocalcaemia [Recovering/Resolving]

NARRATIVE: CASE EVENT DATE: 20131010
